FAERS Safety Report 21903863 (Version 1)
Quarter: 2023Q1

REPORT INFORMATION
  Report Type: Spontaneous
  Country: US (occurrence: US)
  Receive Date: 20230124
  Receipt Date: 20230124
  Transmission Date: 20230418
  Serious: Yes (Other)
  Sender: FDA-Public Use
  Company Number: US-HALEON-USCH2023002842

PATIENT

DRUGS (1)
  1. GAS-X EXTRA STRENGTH [Suspect]
     Active Substance: DIMETHICONE
     Indication: Abdominal distension
     Dosage: UNK
     Dates: end: 2022

REACTIONS (2)
  - Loss of consciousness [Recovered/Resolved]
  - Dizziness [Recovered/Resolved]
